FAERS Safety Report 6096881-9 (Version None)
Quarter: 2009Q1

REPORT INFORMATION
  Report Type: 
  Country: None (occurrence: None)
  Receive Date: 20090223
  Receipt Date: 20080623
  Transmission Date: 20090719
  Serious: Yes (Hospitalization)
  Sender: FDA-Public Use
  Company Number: WAES 0806USA08114

PATIENT
  Age: 52 Year
  Sex: Female

DRUGS (8)
  1. ZOCOR [Suspect]
     Indication: BLOOD CHOLESTEROL
     Dosage: 20 MG/DAILY/PO
     Route: 048
     Dates: start: 20080425, end: 20080601
  2. KEPPRA [Concomitant]
  3. KLONOPIN [Concomitant]
  4. LEXAPRO [Concomitant]
  5. SEROQUEL [Concomitant]
  6. ASPIRIN [Concomitant]
  7. FLUPHENAZINE [Concomitant]
  8. METHADONE HYDROCHLORIDE [Concomitant]

REACTIONS (1)
  - RHABDOMYOLYSIS [None]
